FAERS Safety Report 13587003 (Version 1)
Quarter: 2017Q2

REPORT INFORMATION
  Report Type: Report from Study
  Country: US (occurrence: US)
  Receive Date: 20170526
  Receipt Date: 20170526
  Transmission Date: 20170830
  Serious: Yes (Hospitalization)
  Sender: FDA-Public Use
  Company Number: US-GILEAD-2017-0274305

PATIENT
  Age: 59 Year
  Sex: Female

DRUGS (2)
  1. AZTREONAM LYSINE [Suspect]
     Active Substance: AZTREONAM LYSINE
     Indication: LUNG TRANSPLANT
  2. AZTREONAM LYSINE [Suspect]
     Active Substance: AZTREONAM LYSINE
     Indication: PRIMARY CILIARY DYSKINESIA
     Dosage: 75 MG, UNK
     Route: 055
     Dates: start: 20161012

REACTIONS (2)
  - Bronchoscopy [Unknown]
  - Off label use [Not Recovered/Not Resolved]
